FAERS Safety Report 17731043 (Version 1)
Quarter: 2020Q2

REPORT INFORMATION
  Report Type: Spontaneous
  Country: CA (occurrence: CA)
  Receive Date: 20200430
  Receipt Date: 20200430
  Transmission Date: 20200714
  Serious: Yes (Other)
  Sender: FDA-Public Use
  Company Number: CA-BAUSCH-BL-2020-012849

PATIENT
  Age: 73 Year
  Sex: Male

DRUGS (2)
  1. VISUDYNE [Suspect]
     Active Substance: VERTEPORFIN
     Indication: PRODUCT USE IN UNAPPROVED INDICATION
  2. VISUDYNE [Suspect]
     Active Substance: VERTEPORFIN
     Indication: LUNG NEOPLASM MALIGNANT
     Route: 042

REACTIONS (6)
  - Constipation [Unknown]
  - Malignant neoplasm progression [Unknown]
  - Arthralgia [Unknown]
  - Pulmonary mass [Unknown]
  - Product use in unapproved indication [Unknown]
  - Lumbar vertebral fracture [Unknown]
